FAERS Safety Report 13572030 (Version 2)
Quarter: 2017Q3

REPORT INFORMATION
  Report Type: Report from Study
  Country: MX (occurrence: MX)
  Receive Date: 20170523
  Receipt Date: 20170829
  Transmission Date: 20171127
  Serious: Yes (Other)
  Sender: FDA-Public Use
  Company Number: PHHY2016MX167322

PATIENT
  Age: 55 Year
  Sex: Female
  Weight: 65 kg

DRUGS (6)
  1. PANCLASA [Concomitant]
     Indication: PRODUCT USED FOR UNKNOWN INDICATION
     Route: 065
  2. BUSCAPINA [Concomitant]
     Active Substance: BUTYLSCOPOLAMINE BROMIDE
     Indication: PRODUCT USED FOR UNKNOWN INDICATION
     Route: 065
  3. GALVUS MET [Suspect]
     Active Substance: METFORMIN HYDROCHLORIDE\VILDAGLIPTIN
     Indication: DIABETES MELLITUS
     Dosage: 1 DF (METFORMIN 500MG/ VILDAGLIPTIN 50MG), QD
     Route: 048
  4. GALVUS MET [Suspect]
     Active Substance: METFORMIN HYDROCHLORIDE\VILDAGLIPTIN
     Dosage: 1 DF (METFORMIN 850MG/ VILDAGLIPTIN 50MG), IN AFTERNOON AFTER THE MEAL
     Route: 048
     Dates: start: 2013
  5. CO-DIOVAN [Suspect]
     Active Substance: HYDROCHLOROTHIAZIDE\VALSARTAN
     Indication: HYPERTENSION
     Dosage: 1 DF (HYDROCHLOROTHIAZIDE 12.5 MG/VALSARTAN 160 MG), QD
     Route: 048
     Dates: start: 2013
  6. INSULIN [Concomitant]
     Active Substance: INSULIN NOS
     Indication: DIABETES MELLITUS
     Dosage: 20 U, QD
     Route: 030
     Dates: start: 2015

REACTIONS (15)
  - Fracture [Unknown]
  - Eye disorder [Recovered/Resolved]
  - Vision blurred [Not Recovered/Not Resolved]
  - Diabetes mellitus inadequate control [Unknown]
  - Intraocular pressure increased [Recovered/Resolved]
  - Stress [Unknown]
  - Blood glucose increased [Recovered/Resolved]
  - Fall [Recovered/Resolved]
  - Blood glucose abnormal [Unknown]
  - Skin discolouration [Not Recovered/Not Resolved]
  - Eye haemorrhage [Unknown]
  - Cataract [Unknown]
  - Retinal detachment [Unknown]
  - Eye haemorrhage [Recovered/Resolved]
  - Upper limb fracture [Not Recovered/Not Resolved]

NARRATIVE: CASE EVENT DATE: 201606
